FAERS Safety Report 8622771-0 (Version None)
Quarter: 2012Q3

REPORT INFORMATION
  Report Type: 
  Country: None (occurrence: None)
  Receive Date: 20120827
  Receipt Date: 20120816
  Transmission Date: 20120928
  Serious: Yes (Other)
  Sender: FDA-Public Use
  Company Number: US-JNJFOC-20120809393

PATIENT
  Age: 59 Year
  Sex: Female
  Weight: 127.01 kg

DRUGS (3)
  1. MEDICATION FOR DIABETES [Concomitant]
     Indication: DIABETES MELLITUS
     Route: 065
  2. UNSPECIFIED LUPUS MEDICATION [Concomitant]
     Indication: SYSTEMIC LUPUS ERYTHEMATOSUS
     Route: 065
  3. STELARA [Suspect]
     Indication: PSORIASIS
     Dosage: PATIENT HAD RECEIVED A TOTAL OF 5 DOSES OF USTEKINUMAB
     Route: 058

REACTIONS (1)
  - CARDIAC FAILURE [None]
